FAERS Safety Report 8943481 (Version 2)
Quarter: 2013Q4

REPORT INFORMATION
  Report Type: Spontaneous
  Country: GB (occurrence: GB)
  Receive Date: 20121203
  Receipt Date: 20131003
  Transmission Date: 20140711
  Serious: Yes (Hospitalization)
  Sender: FDA-Public Use
  Company Number: PHHY2012GB109530

PATIENT
  Age: 54 Year
  Sex: 0

DRUGS (14)
  1. LEVETIRACETAM [Suspect]
     Indication: EPILEPSY
     Dosage: 1 G, BID
     Route: 048
     Dates: start: 20121027, end: 20121028
  2. CIPROFLOXACIN [Suspect]
     Route: 048
     Dates: start: 20121028, end: 20121029
  3. CIPROFLOXACIN [Suspect]
     Route: 048
     Dates: start: 20121027, end: 20121028
  4. NITROFURANTOIN [Suspect]
     Dosage: 100 MG, QID
     Route: 048
     Dates: start: 20121028, end: 20121029
  5. TRIMETHOPRIM [Suspect]
     Dosage: 200 MG, BID
     Route: 048
     Dates: start: 20121029, end: 20121030
  6. TOPIRAMATE [Concomitant]
     Indication: EPILEPSY
     Dosage: 50 MG, BID
     Route: 048
  7. LOPERAMIDE [Concomitant]
     Route: 048
     Dates: start: 20121027, end: 20121027
  8. OMEPRAZOLE [Concomitant]
     Dosage: 40 MG, QD
     Route: 040
     Dates: start: 20121030
  9. DOMPERIDONE [Concomitant]
     Dosage: 20 MG, TID
     Route: 048
     Dates: start: 20121030
  10. PARACETAMOL [Concomitant]
     Dosage: 1 G
     Route: 048
     Dates: start: 20121029
  11. CHLORPHENAMINE [Concomitant]
     Dosage: 4 MG, UNK
     Route: 048
     Dates: start: 20121029
  12. CYCLIZINE [Concomitant]
     Dosage: 50 MG, TID
     Dates: start: 20121028, end: 20121030
  13. METOCLOPRAMIDE [Concomitant]
     Dosage: STAT DOSE AFTER RASH NOTICED
     Dates: start: 20121030, end: 20121030
  14. COLESTYRAMINE [Concomitant]
     Dosage: 4 G, QD
     Dates: start: 20121031

REACTIONS (6)
  - Drug reaction with eosinophilia and systemic symptoms [Unknown]
  - Eosinophilia [Unknown]
  - White blood cell count increased [Unknown]
  - Inflammatory marker increased [Unknown]
  - Rash generalised [Recovering/Resolving]
  - Rash pustular [Unknown]
